FAERS Safety Report 20337022 (Version 1)
Quarter: 2022Q1

REPORT INFORMATION
  Report Type: Spontaneous
  Country: US (occurrence: US)
  Receive Date: 20220114
  Receipt Date: 20220114
  Transmission Date: 20220424
  Serious: Yes (Hospitalization)
  Sender: FDA-Public Use
  Company Number: US-PFIZER INC-202200026400

PATIENT
  Age: 72 Year
  Sex: Female
  Weight: 129.27 kg

DRUGS (1)
  1. HYDROCHLOROTHIAZIDE\QUINAPRIL HYDROCHLORIDE [Suspect]
     Active Substance: HYDROCHLOROTHIAZIDE\QUINAPRIL HYDROCHLORIDE
     Indication: Blood pressure measurement
     Dosage: UNK, 1X/DAY (^10/12^ DOSE, ONE TABLET PER DAY)
     Route: 048
     Dates: start: 2018

REACTIONS (5)
  - Urinary tract infection [Unknown]
  - Drug ineffective [Unknown]
  - Feeling abnormal [Unknown]
  - Blood pressure abnormal [Unknown]
  - Palpitations [Unknown]

NARRATIVE: CASE EVENT DATE: 20180101
